FAERS Safety Report 7311859-2 (Version None)
Quarter: 2011Q1

REPORT INFORMATION
  Report Type: 
  Country: None (occurrence: None)
  Receive Date: 20110224
  Receipt Date: 20110216
  Transmission Date: 20110831
  Serious: Yes (Hospitalization)
  Sender: FDA-Public Use
  Company Number: IT-SANOFI-AVENTIS-2010SA061501

PATIENT
  Age: 78 Year
  Sex: Male
  Weight: 88 kg

DRUGS (37)
  1. CLOPIDOGREL BISULFATE [Suspect]
     Route: 048
     Dates: start: 20100920
  2. ENOXAPARIN SODIUM [Concomitant]
     Dosage: DOSE:8000 UNIT(S)
     Route: 058
     Dates: start: 20100922, end: 20100927
  3. GLYCERYL TRINITRATE [Concomitant]
     Dates: start: 20100921, end: 20100921
  4. PERFALGAN [Concomitant]
     Dates: start: 20100921, end: 20100921
  5. HUMALOG [Concomitant]
     Dates: start: 20100923, end: 20100923
  6. RANITIDINA [Concomitant]
     Dates: start: 20100921
  7. SOLOSA [Concomitant]
     Dates: start: 19950101, end: 20100919
  8. METOPROLOL TARTRATE [Concomitant]
     Dates: start: 20100920, end: 20100920
  9. RAMIPRIL [Concomitant]
     Dates: start: 20100923, end: 20100924
  10. CARVEDILOL [Concomitant]
     Dates: start: 20100921
  11. CLOPIDOGREL BISULFATE [Suspect]
     Indication: ACUTE CORONARY SYNDROME
     Route: 048
     Dates: start: 20100920, end: 20100920
  12. FERLIXIT [Concomitant]
     Dates: start: 20100920, end: 20100920
  13. SERENASE [Concomitant]
     Dates: start: 20100923, end: 20100923
  14. ENOXAPARIN SODIUM [Concomitant]
     Dosage: DOSE:8000 UNIT(S)
     Route: 058
     Dates: start: 20100920, end: 20100920
  15. LORAZEPAM [Concomitant]
     Dates: end: 20100919
  16. LORAZEPAM [Concomitant]
     Dates: start: 20100921, end: 20100921
  17. ALFUZOSIN [Concomitant]
     Dates: start: 20100921
  18. ACETYLCYSTEINE [Concomitant]
     Dates: start: 20100920, end: 20100921
  19. GLYCERYL TRINITRATE [Concomitant]
     Dates: start: 20100920, end: 20100920
  20. TAVANIC [Concomitant]
     Dates: start: 20100923, end: 20100923
  21. BLINDED THERAPY [Suspect]
     Indication: ACUTE CORONARY SYNDROME
     Route: 042
     Dates: start: 20100920, end: 20100920
  22. ASPIRIN [Suspect]
     Indication: ACUTE CORONARY SYNDROME
     Route: 048
     Dates: start: 19950101
  23. QUINAPRIL [Concomitant]
     Dates: start: 20000101, end: 20100919
  24. KCL-RETARD [Concomitant]
     Dates: start: 20100921, end: 20100921
  25. ENOXAPARIN SODIUM [Concomitant]
     Dosage: DOSE:2000 UNIT(S)
     Route: 058
     Dates: start: 20100921, end: 20100921
  26. HYDROCHLOROTHIAZIDE [Concomitant]
     Dates: start: 20000101, end: 20100919
  27. MIDAZOLAM HCL [Concomitant]
     Dates: start: 20100922, end: 20100922
  28. HUMALOG [Concomitant]
     Dates: start: 20100925, end: 20100928
  29. ROSUVASTATIN [Concomitant]
     Dates: start: 20100701, end: 20100919
  30. ROSUVASTATIN [Concomitant]
     Dates: start: 20100921
  31. ATORVASTATIN [Concomitant]
     Dates: start: 20100921, end: 20100921
  32. ALFUZOSIN [Concomitant]
     Dates: end: 20100919
  33. KCL-RETARD [Concomitant]
     Dates: start: 20100920, end: 20100920
  34. RAMIPRIL [Concomitant]
     Dates: start: 20100921, end: 20100921
  35. SERENASE [Concomitant]
     Dates: start: 20100921, end: 20100921
  36. VENACTONE [Concomitant]
     Dates: start: 20100922, end: 20100922
  37. TAVANIC [Concomitant]
     Dates: start: 20100924, end: 20101002

REACTIONS (2)
  - HAEMOGLOBIN DECREASED [None]
  - ACUTE PULMONARY OEDEMA [None]
